FAERS Safety Report 9993929 (Version 1)
Quarter: 2014Q1

REPORT INFORMATION
  Report Type: Spontaneous
  Country: US (occurrence: US)
  Receive Date: 20140310
  Receipt Date: 20140310
  Transmission Date: 20141002
  Serious: No
  Sender: FDA-Public Use
  Company Number: US-AMGEN-USASP2013051962

PATIENT
  Age: 77 Year
  Sex: Male

DRUGS (4)
  1. EPOGEN [Suspect]
     Indication: RENAL FAILURE CHRONIC
     Dosage: 12000 UNIT, 3 TIMES/WK
     Route: 065
     Dates: start: 201208
  2. SENSIPAR [Suspect]
     Indication: HYPERPARATHYROIDISM
     Dosage: 30 MG, QD
     Route: 065
     Dates: start: 20130109
  3. ZEMPLAR [Concomitant]
     Dosage: 11 MUG, 3 TIMES/WK
  4. IRON [Concomitant]
     Dosage: 100 MUG, 2 TIMES/WK

REACTIONS (2)
  - Drug ineffective [Unknown]
  - Haemoglobin abnormal [Unknown]
